FAERS Safety Report 23913047 (Version 1)
Quarter: 2024Q2

REPORT INFORMATION
  Report Type: Report from Study
  Country: RU (occurrence: RU)
  Receive Date: 20240529
  Receipt Date: 20240529
  Transmission Date: 20240716
  Serious: Yes (Hospitalization, Other)
  Sender: FDA-Public Use
  Company Number: RU-ROCHE-3018332

PATIENT

DRUGS (4)
  1. PRALSETINIB [Suspect]
     Active Substance: PRALSETINIB
     Indication: Thyroid cancer
     Dosage: 300 MILLIGRAM, QD
     Route: 048
     Dates: start: 20220220
  2. PRALSETINIB [Suspect]
     Active Substance: PRALSETINIB
     Dosage: 400 MILLIGRAM, QD
     Route: 048
     Dates: start: 20220124
  3. CALCITONIN [Concomitant]
     Active Substance: CALCITONIN
     Indication: Product used for unknown indication
     Dosage: 35.2 PG/ML
     Dates: start: 20221114
  4. LEVOTHYROXINE SODIUM [Concomitant]
     Active Substance: LEVOTHYROXINE SODIUM
     Indication: Product used for unknown indication

REACTIONS (30)
  - Enterocolitis [Recovered/Resolved]
  - Hyperkalaemia [Unknown]
  - Diarrhoea [Recovered/Resolved]
  - Neutropenia [Recovered/Resolved]
  - COVID-19 [Unknown]
  - Respiratory tract infection viral [Unknown]
  - Hypotension [Recovered/Resolved]
  - Palmar-plantar erythrodysaesthesia syndrome [Recovered/Resolved]
  - Hyperuricaemia [Recovered/Resolved]
  - Eczema [Not Recovered/Not Resolved]
  - Cystitis bacterial [Recovered/Resolved]
  - Hypoaesthesia [Recovered/Resolved]
  - Formication [Recovered/Resolved]
  - Body temperature increased [Recovered/Resolved]
  - Epistaxis [Unknown]
  - Blood creatine phosphokinase increased [Unknown]
  - Aspartate aminotransferase increased [Recovered/Resolved]
  - Aspartate aminotransferase increased [Recovered/Resolved]
  - Abdominal pain [Recovered/Resolved]
  - Haemorrhoidal haemorrhage [Recovered/Resolved]
  - Hypoalbuminaemia [Not Recovered/Not Resolved]
  - Constipation [Unknown]
  - Hypocalcaemia [Unknown]
  - Blood creatine phosphokinase increased [Recovered/Resolved]
  - Anaemia [Recovered/Resolved]
  - Lymphopenia [Not Recovered/Not Resolved]
  - Lung disorder [Unknown]
  - Proteinuria [Recovered/Resolved]
  - Cystitis bacterial [Recovered/Resolved]
  - Blood thyroid stimulating hormone increased [Not Recovered/Not Resolved]

NARRATIVE: CASE EVENT DATE: 20220301
